FAERS Safety Report 25667935 (Version 1)
Quarter: 2025Q3

REPORT INFORMATION
  Report Type: Spontaneous
  Country: US (occurrence: US)
  Receive Date: 20250812
  Receipt Date: 20250812
  Transmission Date: 20251020
  Serious: No
  Sender: RECKITT BENCKISER
  Company Number: US-PROD-AS2-212756134-20-25-USA-RB-0003524

PATIENT
  Age: 78 Year
  Sex: Female

DRUGS (1)
  1. MUCINEX [Suspect]
     Active Substance: GUAIFENESIN
     Indication: Product used for unknown indication
     Route: 048
     Dates: start: 20250303

REACTIONS (2)
  - Heart rate increased [Recovering/Resolving]
  - Accidental overdose [Recovering/Resolving]

NARRATIVE: CASE EVENT DATE: 20250303
